FAERS Safety Report 10070519 (Version 1)
Quarter: 2014Q2

REPORT INFORMATION
  Report Type: Spontaneous
  Country: US (occurrence: US)
  Receive Date: 20140410
  Receipt Date: 20140410
  Transmission Date: 20141212
  Serious: No
  Sender: FDA-Public Use
  Company Number: US-BAYER-2014-053648

PATIENT
  Age: 61 Year
  Sex: Female

DRUGS (10)
  1. ALEVE GELCAPS [Suspect]
     Dosage: 2 DF, PRN
     Route: 048
     Dates: start: 20140408
  2. VICODIN [Concomitant]
  3. LEVOTHYROXINE [Concomitant]
  4. LOVASTATIN [Concomitant]
  5. AMLODIPINE [Concomitant]
  6. ASPIRIN [Concomitant]
  7. MELOXICAM [Concomitant]
  8. ATENOLOL [Concomitant]
  9. OMEPRAZOLE [Concomitant]
  10. GLUCOSAMIN [Concomitant]

REACTIONS (1)
  - Dyspepsia [Not Recovered/Not Resolved]
